FAERS Safety Report 15309905 (Version 1)
Quarter: 2018Q3

REPORT INFORMATION
  Report Type: Spontaneous
  Country: US (occurrence: US)
  Receive Date: 20180813
  Receipt Date: 20180813
  Transmission Date: 20181010
  Serious: Yes (Life-Threatening, Hospitalization, Disabling, Other)
  Sender: FDA-Public Use
  Company Number: None

PATIENT
  Age: 21 Year
  Sex: Male
  Weight: 99 kg

DRUGS (1)
  1. VISTARIL [Suspect]
     Active Substance: HYDROXYZINE PAMOATE
     Dates: start: 20180109, end: 20180110

REACTIONS (7)
  - Tardive dyskinesia [None]
  - Contraindicated product administered [None]
  - Mental impairment [None]
  - Swelling [None]
  - Drug hypersensitivity [None]
  - Victim of crime [None]
  - Brain injury [None]
